FAERS Safety Report 4851043-5 (Version None)
Quarter: 2005Q4

REPORT INFORMATION
  Report Type: 
  Country: None (occurrence: None)
  Receive Date: 20051212
  Receipt Date: 20051128
  Transmission Date: 20060501
  Serious: Yes (Death)
  Sender: FDA-Public Use
  Company Number: CA-NOVOPROD-249035

PATIENT
  Age: 78 Year
  Sex: Male
  Weight: 100 kg

DRUGS (2)
  1. VERSED [Concomitant]
     Indication: AGITATION
     Dosage: 5 MG, PRN
     Route: 042
     Dates: start: 20051124, end: 20051124
  2. NOVOSEVEN [Suspect]
     Indication: CEREBRAL HAEMORRHAGE
     Dosage: 80 UG/KG, SINGLE
     Route: 042
     Dates: start: 20051123, end: 20051123

REACTIONS (4)
  - ANGIOPATHY [None]
  - CEREBRAL HAEMORRHAGE [None]
  - HAEMORRHAGIC STROKE [None]
  - HYPERTENSION [None]
